FAERS Safety Report 5298105-9 (Version None)
Quarter: 2007Q2

REPORT INFORMATION
  Report Type: 
  Country: None (occurrence: None)
  Receive Date: 20070416
  Receipt Date: 20070409
  Transmission Date: 20071010
  Serious: Yes (Hospitalization)
  Sender: FDA-Public Use
  Company Number: US-ELI_LILLY_AND_COMPANY-US200704002548

PATIENT
  Age: 62 Year
  Sex: Female

DRUGS (2)
  1. HUMULIN 70/30 [Suspect]
     Indication: DIABETES MELLITUS
     Dates: start: 20040101
  2. INFLUENZA VACCINE [Concomitant]

REACTIONS (6)
  - BLOOD GLUCOSE INCREASED [None]
  - BRONCHITIS [None]
  - COUGH [None]
  - FAECALOMA [None]
  - INFLUENZA [None]
  - MALAISE [None]
